FAERS Safety Report 6268476-5 (Version None)
Quarter: 2009Q3

REPORT INFORMATION
  Report Type: 
  Country: None (occurrence: None)
  Receive Date: 20090710
  Receipt Date: 20090710
  Transmission Date: 20100115
  Serious: Yes (Life-Threatening)
  Sender: FDA-Public Use
  Company Number: None

PATIENT
  Age: 38 Year
  Sex: Female
  Weight: 56.6996 kg

DRUGS (1)
  1. YAZ [Suspect]
     Indication: PREMENSTRUAL SYNDROME
     Dosage: 1 PILL DAILY PO
     Route: 048
     Dates: start: 20080727, end: 20080909

REACTIONS (6)
  - DEPRESSION [None]
  - HYPOPHAGIA [None]
  - INSOMNIA [None]
  - MENTAL DISORDER [None]
  - TOOTH DISORDER [None]
  - TREMOR [None]
